FAERS Safety Report 13936792 (Version 1)
Quarter: 2017Q3

REPORT INFORMATION
  Report Type: Report from Study
  Country: BR (occurrence: BR)
  Receive Date: 20170905
  Receipt Date: 20170905
  Transmission Date: 20171127
  Serious: Yes (Other)
  Sender: FDA-Public Use
  Company Number: PHHY2017BR126747

PATIENT
  Age: 70 Year
  Sex: Male

DRUGS (2)
  1. NILOTINIB [Suspect]
     Active Substance: NILOTINIB
     Indication: CHRONIC MYELOID LEUKAEMIA
     Dosage: 200 MG, UNK
     Route: 065
  2. IMATINIB [Suspect]
     Active Substance: IMATINIB
     Indication: CHRONIC MYELOID LEUKAEMIA
     Dosage: 400 MG, UNK
     Route: 065

REACTIONS (11)
  - Skin cancer [Unknown]
  - Epistaxis [Unknown]
  - Second primary malignancy [Unknown]
  - Blister [Unknown]
  - Weight increased [Unknown]
  - Eating disorder [Unknown]
  - Photosensitivity reaction [Unknown]
  - Platelet count decreased [Unknown]
  - Asthenia [Unknown]
  - Abdominal distension [Unknown]
  - Oedema peripheral [Unknown]
